FAERS Safety Report 9161881 (Version 2)
Quarter: 2013Q2

REPORT INFORMATION
  Report Type: Spontaneous
  Country: US (occurrence: US)
  Receive Date: 20130314
  Receipt Date: 20130605
  Transmission Date: 20140414
  Serious: No
  Sender: FDA-Public Use
  Company Number: US-009507513-1303USA005928

PATIENT
  Age: 25 Year
  Sex: Female
  Weight: 73.47 kg

DRUGS (1)
  1. IMPLANON [Suspect]
     Dosage: 1 ROD,
     Route: 059
     Dates: start: 20130308

REACTIONS (4)
  - Device difficult to use [Recovered/Resolved]
  - Medical device complication [Recovered/Resolved]
  - Product quality issue [Unknown]
  - No adverse event [Unknown]
